FAERS Safety Report 26011105 (Version 1)
Quarter: 2025Q4

REPORT INFORMATION
  Report Type: Spontaneous
  Country: US (occurrence: None)
  Receive Date: 20251106
  Receipt Date: 20251106
  Transmission Date: 20260118
  Serious: Yes (Hospitalization)
  Sender: FDA-CTU
  Company Number: None

PATIENT
  Age: 34 Year
  Sex: Female

DRUGS (1)
  1. BENLYSTA [Suspect]
     Active Substance: BELIMUMAB
     Indication: Systemic lupus erythematosus
     Dosage: OTHER FREQUENCY : WEEKLY;?
     Route: 058
     Dates: start: 20250522

REACTIONS (4)
  - Diabetes mellitus inadequate control [None]
  - Diabetic ketoacidosis [None]
  - Product dose omission in error [None]
  - Blood glucose increased [None]

NARRATIVE: CASE EVENT DATE: 20251007
